FAERS Safety Report 11918016 (Version 1)
Quarter: 2016Q1

REPORT INFORMATION
  Report Type: Spontaneous
  Country: US (occurrence: US)
  Receive Date: 20160114
  Receipt Date: 20160114
  Transmission Date: 20160526
  Serious: Yes (Other)
  Sender: FDA-Public Use
  Company Number: PHHY2016US000680

PATIENT
  Sex: Female
  Weight: 2.9 kg

DRUGS (11)
  1. HYDRALAZINE [Suspect]
     Active Substance: HYDRALAZINE HYDROCHLORIDE
     Indication: FOETAL EXPOSURE DURING PREGNANCY
     Dosage: UNK
     Route: 064
  2. CHLORTALIDONE [Suspect]
     Active Substance: CHLORTHALIDONE
     Indication: FOETAL EXPOSURE DURING PREGNANCY
     Route: 064
  3. LABETALOL [Suspect]
     Active Substance: LABETALOL\LABETALOL HYDROCHLORIDE
     Indication: FOETAL EXPOSURE DURING PREGNANCY
     Route: 064
  4. AMLODIPINE [Suspect]
     Active Substance: AMLODIPINE BESYLATE
     Indication: FOETAL EXPOSURE DURING PREGNANCY
     Route: 064
  5. NIFEDIPINE. [Suspect]
     Active Substance: NIFEDIPINE
     Indication: FOETAL EXPOSURE DURING PREGNANCY
     Route: 064
  6. NICARDIPINE SANDOZ [Suspect]
     Active Substance: NICARDIPINE
     Indication: FOETAL EXPOSURE DURING PREGNANCY
     Route: 064
  7. PROPOFOL. [Suspect]
     Active Substance: PROPOFOL
     Indication: FOETAL EXPOSURE DURING PREGNANCY
     Route: 064
  8. CLONIDINE. [Suspect]
     Active Substance: CLONIDINE
     Indication: FOETAL EXPOSURE DURING PREGNANCY
     Route: 064
  9. LIDOCAINE. [Suspect]
     Active Substance: LIDOCAINE
     Indication: FOETAL EXPOSURE DURING PREGNANCY
     Route: 064
  10. SUCCINYLCHOLINE CHLORIDE. [Suspect]
     Active Substance: SUCCINYLCHOLINE CHLORIDE
     Indication: FOETAL EXPOSURE DURING PREGNANCY
     Route: 064
  11. ESMOLOL [Suspect]
     Active Substance: ESMOLOL HYDROCHLORIDE
     Indication: FOETAL EXPOSURE DURING PREGNANCY
     Route: 064

REACTIONS (4)
  - Apgar score low [Unknown]
  - Foetal exposure during pregnancy [Unknown]
  - Premature baby [Unknown]
  - Foetal heart rate abnormal [Unknown]
